FAERS Safety Report 9044189 (Version 1)
Quarter: 2013Q1

REPORT INFORMATION
  Report Type: Report from Study
  Country: US (occurrence: US)
  Receive Date: 20130130
  Receipt Date: 20130130
  Transmission Date: 20140127
  Serious: No
  Sender: FDA-Public Use
  Company Number: US-ABBOTT-12P-163-0955730-00

PATIENT
  Age: 48 Year
  Sex: Male

DRUGS (3)
  1. HUMIRA 40 MG/0.8 ML PEN [Suspect]
     Indication: CROHN^S DISEASE
     Dates: start: 20120414, end: 20120623
  2. AMLODIPINE [Concomitant]
     Indication: HYPERTENSION
     Route: 048
  3. LIBRAX [Concomitant]
     Indication: IRRITABLE BOWEL SYNDROME

REACTIONS (2)
  - Fatigue [Not Recovered/Not Resolved]
  - Nausea [Not Recovered/Not Resolved]
